FAERS Safety Report 14614549 (Version 2)
Quarter: 2018Q2

REPORT INFORMATION
  Report Type: Report from Study
  Country: MX (occurrence: MX)
  Receive Date: 20180308
  Receipt Date: 20180418
  Transmission Date: 20180711
  Serious: Yes (Other)
  Sender: FDA-Public Use
  Company Number: PHHY2018MX035788

PATIENT
  Age: 77 Year
  Sex: Male
  Weight: 60 kg

DRUGS (5)
  1. EXFORGE [Suspect]
     Active Substance: AMLODIPINE BESYLATE\VALSARTAN
     Indication: HYPERTENSION
     Dosage: 1 DF (AMLODIPINE 5 MG, VALSARTAN 320 MG), QD (4 YEARS AGO)
     Route: 048
  2. ALDOMET [Concomitant]
     Active Substance: METHYLDOPA
     Indication: HYPERTENSION
     Dosage: 250 MG, QD (HALF IN THE MORNING AND HALF AT NIGHT)
     Route: 048
  3. GLIMETAL [Concomitant]
     Indication: BLOOD GLUCOSE ABNORMAL
     Dosage: 2 DF (GLIMEPIRIDE 2MG, METFORMIN 10000 MG), QD
     Route: 065
     Dates: start: 2010
  4. EXFORGE [Suspect]
     Active Substance: AMLODIPINE BESYLATE\VALSARTAN
     Dosage: 1 DF (AMLODIPINE 5 MG, VALSARTAN 160 MG), QD
     Route: 048
     Dates: end: 201712
  5. LANTUS [Concomitant]
     Active Substance: INSULIN GLARGINE
     Indication: BLOOD GLUCOSE ABNORMAL
     Dosage: UNK (40 YEARS AGO) (DID NOT HAVE A SPECIFIC DOSE (VARIES DEPENDING ON GLUCOSE))
     Route: 058

REACTIONS (3)
  - Renal disorder [Not Recovered/Not Resolved]
  - Embolism [Unknown]
  - Anaemia [Not Recovered/Not Resolved]

NARRATIVE: CASE EVENT DATE: 20160504
